FAERS Safety Report 20309927 (Version 2)
Quarter: 2023Q1

REPORT INFORMATION
  Report Type: Other
  Country: AU (occurrence: None)
  Receive Date: 20220107
  Receipt Date: 20230313
  Transmission Date: 20230417
  Serious: Yes (Death, Other)
  Sender: FDA-Public Use
  Company Number: AU-ROCHE-2997411

PATIENT

DRUGS (2)
  1. RITUXIMAB [Suspect]
     Active Substance: RITUXIMAB
     Indication: Follicular lymphoma
     Dosage: FOR 2 YEARS
     Route: 065
  2. LENALIDOMIDE [Suspect]
     Active Substance: LENALIDOMIDE
     Indication: Follicular lymphoma
     Dosage: 10MG/D X 21 Q28D,
     Route: 065

REACTIONS (5)
  - Neoplasm malignant [Fatal]
  - Neutropenia [Unknown]
  - Infection [Unknown]
  - Cardiac disorder [Unknown]
  - Musculoskeletal disorder [Unknown]
